FAERS Safety Report 7189371-3 (Version None)
Quarter: 2010Q4

REPORT INFORMATION
  Report Type: 
  Country: None (occurrence: None)
  Receive Date: 20101222
  Receipt Date: 20100903
  Transmission Date: 20110411
  Serious: No
  Sender: FDA-Public Use
  Company Number: US-AMGEN-TCS422019

PATIENT

DRUGS (4)
  1. ENBREL [Suspect]
     Indication: JUVENILE ARTHRITIS
     Dosage: 25 MG, 2 TIMES/WK
     Route: 058
     Dates: start: 20090503
  2. DICLOFENAC SODIUM [Concomitant]
     Dosage: UNK UNK, UNK
     Dates: end: 20100701
  3. CLOMID [Concomitant]
     Dosage: UNK UNK, UNK
     Dates: start: 20100201
  4. CHORIONIC GONADOTROPIN [Concomitant]
     Dosage: UNK UNK, UNK
     Dates: start: 20100201

REACTIONS (1)
  - OVARIAN DISORDER [None]
